FAERS Safety Report 6194685-X (Version None)
Quarter: 2009Q2

REPORT INFORMATION
  Report Type: 
  Country: None (occurrence: None)
  Receive Date: 20090515
  Receipt Date: 20090515
  Transmission Date: 20091009
  Serious: Yes (Hospitalization)
  Sender: FDA-Public Use
  Company Number: None

PATIENT
  Sex: Female
  Weight: 67 kg

DRUGS (2)
  1. TAXOL [Suspect]
     Dosage: 140 MG
     Dates: start: 20090507, end: 20090507
  2. HERCEPTIN [Suspect]
     Dates: end: 20090430

REACTIONS (1)
  - CHEST DISCOMFORT [None]
